FAERS Safety Report 21087284 (Version 2)
Quarter: 2023Q2

REPORT INFORMATION
  Report Type: Spontaneous
  Country: ES (occurrence: ES)
  Receive Date: 20220715
  Receipt Date: 20230628
  Transmission Date: 20230722
  Serious: Yes (Other)
  Sender: FDA-Public Use
  Company Number: ES-MSNLABS-2022MSNLIT00817

PATIENT

DRUGS (3)
  1. TERIFLUNOMIDE [Suspect]
     Active Substance: TERIFLUNOMIDE
     Indication: Relapsing multiple sclerosis
     Dosage: 14 MILLIGRAM, QD
     Route: 065
  2. TERIFLUNOMIDE [Suspect]
     Active Substance: TERIFLUNOMIDE
     Dosage: TREATMENT WITH TERIFLUNOMIDE WAS RESTARTED
     Route: 065
  3. METHYLPREDNISOLONE [Suspect]
     Active Substance: METHYLPREDNISOLONE
     Indication: Relapsing multiple sclerosis
     Dosage: 1000 MG PER DAY FOR 5 DAYS
     Route: 042

REACTIONS (1)
  - Raynaud^s phenomenon [Recovered/Resolved]
